FAERS Safety Report 18187374 (Version 3)
Quarter: 2020Q3

REPORT INFORMATION
  Report Type: Spontaneous
  Country: PT (occurrence: PT)
  Receive Date: 20200824
  Receipt Date: 20200910
  Transmission Date: 20201103
  Serious: Yes (Life-Threatening, Hospitalization)
  Sender: FDA-Public Use
  Company Number: PT-PFIZER INC-2020325513

PATIENT
  Age: 61 Year
  Sex: Female
  Weight: 55 kg

DRUGS (4)
  1. TRASTUZUMAB. [Suspect]
     Active Substance: TRASTUZUMAB
     Indication: BREAST NEOPLASM
     Dosage: UNK
     Route: 042
     Dates: start: 20200226, end: 20200729
  2. CARBOPLATIN. [Concomitant]
     Active Substance: CARBOPLATIN
     Dosage: UNK
     Route: 042
  3. DOCETAXEL. [Concomitant]
     Active Substance: DOCETAXEL
     Indication: BREAST NEOPLASM
     Dosage: UNK
  4. PEMBROLIZUMAB. [Concomitant]
     Active Substance: PEMBROLIZUMAB
     Indication: BREAST NEOPLASM
     Dosage: UNK
     Route: 042

REACTIONS (2)
  - Respiratory failure [Recovered/Resolved]
  - Neoplasm recurrence [Unknown]

NARRATIVE: CASE EVENT DATE: 20200729
